FAERS Safety Report 7280052-4 (Version None)
Quarter: 2011Q1

REPORT INFORMATION
  Report Type: 
  Country: None (occurrence: None)
  Receive Date: 20110126
  Receipt Date: 20110124
  Transmission Date: 20110831
  Serious: Yes (Hospitalization)
  Sender: FDA-Public Use
  Company Number: SP03433

PATIENT
  Age: 39 Year
  Sex: Female
  Weight: 39.9165 kg

DRUGS (4)
  1. CELEXA [Concomitant]
  2. LACTULOSE [Concomitant]
  3. XIFAXAN [Suspect]
     Indication: HEPATIC ENCEPHALOPATHY
     Dosage: 1100 MG (550 MG,2 IN 1 D),ORAL
     Route: 048
     Dates: start: 20101228, end: 20101231
  4. XIFAXAN [Suspect]
     Indication: HEPATIC ENCEPHALOPATHY
     Dosage: 1100 MG (550 MG,2 IN 1 D),ORAL
     Route: 048
     Dates: start: 20110118, end: 20110122

REACTIONS (4)
  - MANIA [None]
  - DELUSION [None]
  - PARANOIA [None]
  - PLEURAL EFFUSION [None]
